FAERS Safety Report 17566557 (Version 10)
Quarter: 2021Q1

REPORT INFORMATION
  Report Type: Report from Study
  Country: FR (occurrence: FR)
  Receive Date: 20200320
  Receipt Date: 20210322
  Transmission Date: 20210419
  Serious: Yes (Hospitalization)
  Sender: FDA-Public Use
  Company Number: FR-ROCHE-2434880

PATIENT
  Age: 57 Year
  Sex: Male
  Weight: 54 kg

DRUGS (54)
  1. OCRELIZUMAB. [Suspect]
     Active Substance: OCRELIZUMAB
     Route: 042
     Dates: start: 20171227
  2. OCRELIZUMAB. [Suspect]
     Active Substance: OCRELIZUMAB
     Route: 042
     Dates: start: 20180613
  3. OCRELIZUMAB. [Suspect]
     Active Substance: OCRELIZUMAB
     Route: 042
     Dates: start: 20190515
  4. METOJECT [Concomitant]
     Active Substance: METHOTREXATE SODIUM
     Dosage: ON MONDAYS THEN 20 MG THE NEXT WEEK TO BE CONTINUED
  5. METHYLPREDNISOLONE. [Concomitant]
     Active Substance: METHYLPREDNISOLONE
     Indication: PREMEDICATION
     Dosage: SUBSEQUENT DOSES ON 04/JUL/2012, 05/DEC/2012, 21/DEC/2012, 22/MAY/2013, 05/JUN/2013, 06/NOV/2013, 20
     Dates: start: 20120620
  6. DIPROLENE [Concomitant]
     Active Substance: BETAMETHASONE DIPROPIONATE
     Indication: PRURITUS
     Dates: start: 20190125
  7. TAHOR [Concomitant]
     Active Substance: ATORVASTATIN CALCIUM
     Indication: HYPERCHOLESTEROLAEMIA
     Dates: start: 2008, end: 20151210
  8. TRAMADOL. [Concomitant]
     Active Substance: TRAMADOL
     Dates: start: 20191212, end: 20191216
  9. HEPT?A?MYL [Concomitant]
     Active Substance: HEPTAMINOL HYDROCHLORIDE
  10. OCRELIZUMAB. [Suspect]
     Active Substance: OCRELIZUMAB
     Indication: PRIMARY PROGRESSIVE MULTIPLE SCLEROSIS
     Route: 042
     Dates: start: 20120620, end: 20160223
  11. TAHOR [Concomitant]
     Active Substance: ATORVASTATIN CALCIUM
  12. DIPROLENE [Concomitant]
     Active Substance: BETAMETHASONE DIPROPIONATE
     Dates: start: 20150914, end: 20151001
  13. ISPAGHUL [Concomitant]
     Indication: CONSTIPATION
     Dates: start: 20170712
  14. LYRICA [Concomitant]
     Active Substance: PREGABALIN
     Indication: NEURALGIA
     Dates: start: 20151002, end: 20171227
  15. METOPIMAZINE [Concomitant]
     Active Substance: METOPIMAZINE
     Dates: start: 20191212, end: 20191216
  16. SPECIAFOLDINE [Concomitant]
     Active Substance: FOLIC ACID
     Indication: PRURITUS
     Dates: start: 20190911
  17. SUCRALFATE. [Concomitant]
     Active Substance: SUCRALFATE
  18. OCRELIZUMAB. [Suspect]
     Active Substance: OCRELIZUMAB
     Indication: PRIMARY PROGRESSIVE MULTIPLE SCLEROSIS
     Route: 042
     Dates: start: 20160224
  19. OCRELIZUMAB. [Suspect]
     Active Substance: OCRELIZUMAB
     Route: 042
     Dates: start: 20170124
  20. GUTRON [Concomitant]
     Active Substance: MIDODRINE HYDROCHLORIDE
  21. EDUCTYL [Concomitant]
     Active Substance: POTASSIUM BITARTRATE\SODIUM BICARBONATE
     Indication: CONSTIPATION
     Dosage: 1 UNIT
     Dates: start: 20170712
  22. GLYCEROL [Concomitant]
     Active Substance: GLYCERIN
     Indication: PRURITUS ALLERGIC
     Dates: start: 20150914
  23. METHOTREXATE. [Concomitant]
     Active Substance: METHOTREXATE
     Dates: start: 20191209
  24. PREVENAR [Concomitant]
     Active Substance: PNEUMOCOCCAL 7-VALENT CONJUGATE VACCINE (DIPHTHERIA CRM197 PROTEIN)
     Indication: PROPHYLAXIS
     Dates: start: 20190909, end: 20190909
  25. OCRELIZUMAB. [Suspect]
     Active Substance: OCRELIZUMAB
     Route: 042
     Dates: start: 20170712
  26. DIPROLENE [Concomitant]
     Active Substance: BETAMETHASONE DIPROPIONATE
     Dosage: 1 APPLICATION DAILY, THEN SWITCH TO AN EMOLLIENT 1 APPLICATION DAILY
  27. PERFALGAN [Concomitant]
     Active Substance: ACETAMINOPHEN
     Indication: PREMEDICATION
     Dosage: SUBSEQUENT DOSES ON 04/JUL/2012, 05/DEC/2012, 21/DEC/2012, 22/MAY/2013, 05/JUN/2013, 06/NOV/2013, 20
     Dates: start: 20120620
  28. CLARELUX [Concomitant]
     Active Substance: CLOBETASOL PROPIONATE
     Indication: PRURITUS ALLERGIC
     Dates: start: 20150210, end: 20150913
  29. DIPROLENE [Concomitant]
     Active Substance: BETAMETHASONE DIPROPIONATE
     Dates: start: 20151002
  30. DIPHTHERIA AND TETANUS TOXOIDS AND PERTUSSIS VACCINE ADSORBED NOS [Concomitant]
     Active Substance: DIPHTHERIA AND TETANUS TOXOIDS AND PERTUSSIS VACCINE
     Indication: PROPHYLAXIS
     Dates: start: 20190904, end: 20190904
  31. MYCOSTER [Concomitant]
     Active Substance: CICLOPIROX\CICLOPIROX OLAMINE
     Indication: PRURITUS
     Dates: start: 20190129
  32. TOVIAZ [Concomitant]
     Active Substance: FESOTERODINE FUMARATE
     Dates: start: 20180303
  33. TOVIAZ [Concomitant]
     Active Substance: FESOTERODINE FUMARATE
  34. GUTRON [Concomitant]
     Active Substance: MIDODRINE HYDROCHLORIDE
     Indication: ORTHOSTATIC HYPOTENSION
     Dates: start: 20180517
  35. METHOTREXATE. [Concomitant]
     Active Substance: METHOTREXATE
     Dates: start: 20190909, end: 20190909
  36. TAHOR [Concomitant]
     Active Substance: ATORVASTATIN CALCIUM
     Dates: start: 20171230
  37. TOVIAZ [Concomitant]
     Active Substance: FESOTERODINE FUMARATE
     Indication: BLADDER DISORDER
     Dates: start: 20160127, end: 20161219
  38. OCRELIZUMAB. [Suspect]
     Active Substance: OCRELIZUMAB
     Route: 042
     Dates: start: 20160810
  39. CERAT DE GALIEN [Concomitant]
     Indication: PRURITUS ALLERGIC
     Dates: start: 20140318, end: 20140703
  40. UVEDOSE [Concomitant]
     Active Substance: CHOLECALCIFEROL
     Dates: start: 20150528, end: 20150623
  41. PARACETAMOL [Concomitant]
     Active Substance: ACETAMINOPHEN
     Dosage: ON 04/JUN/2012, 20/JUN/2012, 25/MAR/2015, 23/SEP/2015, 10/AUG/2016, 24/JAN/2017, 12/JUL/2017, 27/DEC
     Dates: start: 20121212, end: 20121221
  42. SPECIAFOLDINE [Concomitant]
     Active Substance: FOLIC ACID
     Dosage: 2 TABS EVERY WEDNESDAY
  43. PNEUMO 23 [Concomitant]
     Active Substance: PNEUMOCOCCAL VACCINE, POLYVALENT 23
  44. POLARAMINE [Concomitant]
     Active Substance: DEXCHLORPHENIRAMINE MALEATE
     Indication: PREMEDICATION
     Dosage: SUBSEQUENT DOSES ON 04/JUL/2012, 05/DEC/2012, 21/DEC/2012, 22/MAY/2013, 05/JUN/2013, 06/NOV/2013, 20
     Dates: start: 20120620
  45. ATORVASTATINE [Concomitant]
     Active Substance: ATORVASTATIN
     Indication: HYPERCHOLESTEROLAEMIA
     Dates: start: 20160224
  46. METHOTREXATE. [Concomitant]
     Active Substance: METHOTREXATE
     Indication: PRURITUS
     Dates: start: 20190903, end: 20190903
  47. METHOTREXATE. [Concomitant]
     Active Substance: METHOTREXATE
     Dates: start: 20190916
  48. UVEDOSE [Concomitant]
     Active Substance: CHOLECALCIFEROL
     Indication: VITAMIN D DEFICIENCY
     Dates: start: 20161206
  49. UVEDOSE [Concomitant]
     Active Substance: CHOLECALCIFEROL
     Dates: start: 20131106, end: 20150527
  50. UVEDOSE [Concomitant]
     Active Substance: CHOLECALCIFEROL
     Dates: start: 20150624, end: 20161206
  51. VESICARE [Concomitant]
     Active Substance: SOLIFENACIN SUCCINATE
  52. CERAT DE GALIEN [Concomitant]
     Indication: PRURITUS
     Dates: start: 20190129
  53. DIPROLENE [Concomitant]
     Active Substance: BETAMETHASONE DIPROPIONATE
     Indication: PRURITUS ALLERGIC
     Dates: start: 20140318, end: 20140323
  54. PARACETAMOL [Concomitant]
     Active Substance: ACETAMINOPHEN
     Dosage: ON 04/JUN/2012, 20/JUN/2012, 25/MAR/2015, 23/SEP/2015, 10/AUG/2016, 24/JAN/2017, 12/JUL/2017, 27/DEC
     Dates: start: 20120704

REACTIONS (3)
  - Lymphadenopathy [Recovered/Resolved]
  - Gait disturbance [Recovered/Resolved]
  - Infusion related reaction [Recovered/Resolved]

NARRATIVE: CASE EVENT DATE: 20121206
